FAERS Safety Report 8463394-6 (Version None)
Quarter: 2012Q2

REPORT INFORMATION
  Report Type: 
  Country: None (occurrence: None)
  Receive Date: 20120625
  Receipt Date: 20120613
  Transmission Date: 20120825
  Serious: Yes (Hospitalization, Other)
  Sender: FDA-Public Use
  Company Number: US-MERCK-1205USA05471

PATIENT
  Age: 76 Year
  Sex: Male
  Weight: 83 kg

DRUGS (8)
  1. DECADRON [Suspect]
     Route: 051
     Dates: start: 20110915, end: 20110915
  2. BACTRIM [Concomitant]
     Indication: ANTIBIOTIC LEVEL
     Route: 048
     Dates: start: 20120329, end: 20120430
  3. VALTREX [Concomitant]
     Indication: ANTIVIRAL TREATMENT
     Route: 048
     Dates: start: 20120315
  4. NORVASC [Concomitant]
     Route: 065
  5. DECADRON [Suspect]
     Indication: CHRONIC LYMPHOCYTIC LEUKAEMIA
     Route: 048
     Dates: start: 20120330, end: 20120402
  6. DECADRON [Suspect]
     Indication: LYMPHADENOPATHY
     Route: 048
     Dates: start: 20120330, end: 20120402
  7. DECADRON [Suspect]
     Route: 051
     Dates: start: 20110915, end: 20110915
  8. COREG [Concomitant]
     Indication: HYPERTENSION
     Route: 048

REACTIONS (5)
  - URATE NEPHROPATHY [None]
  - FEBRILE NEUTROPENIA [None]
  - RENAL FAILURE ACUTE [None]
  - TUMOUR LYSIS SYNDROME [None]
  - NEPHROLITHIASIS [None]
